FAERS Safety Report 5506896-4 (Version None)
Quarter: 2007Q4

REPORT INFORMATION
  Report Type: 
  Country: None (occurrence: None)
  Receive Date: 20071105
  Receipt Date: 20071029
  Transmission Date: 20080405
  Serious: Yes (Other)
  Sender: FDA-Public Use
  Company Number: US-PFIZER INC-2007090827

PATIENT
  Sex: Female
  Weight: 79.4 kg

DRUGS (5)
  1. ZYRTEC [Suspect]
     Indication: HYPERSENSITIVITY
  2. CYMBALTA [Interacting]
     Indication: FIBROMYALGIA
  3. ALL OTHER THERAPEUTIC PRODUCTS [Concomitant]
  4. NEXIUM [Concomitant]
  5. TRIAMTERENE [Concomitant]

REACTIONS (4)
  - ACTIVITIES OF DAILY LIVING IMPAIRED [None]
  - APATHY [None]
  - DIZZINESS [None]
  - DRUG INTERACTION [None]
